FAERS Safety Report 11748956 (Version 2)
Quarter: 2016Q2

REPORT INFORMATION
  Report Type: Spontaneous
  Country: US (occurrence: US)
  Receive Date: 20151118
  Receipt Date: 20160606
  Transmission Date: 20160815
  Serious: No
  Sender: FDA-Public Use
  Company Number: US-ASTRAZENECA-2015SF08565

PATIENT
  Age: 97 Year
  Sex: Male

DRUGS (1)
  1. TUDORZA PRESSAIR [Suspect]
     Active Substance: ACLIDINIUM BROMIDE
     Dosage: 2 METERED PUFFS EVERY 12 HOURS
     Route: 055
     Dates: start: 2013

REACTIONS (8)
  - Asthenia [Not Recovered/Not Resolved]
  - Muscle spasms [Unknown]
  - Drug dose omission [Unknown]
  - Device malfunction [Unknown]
  - Off label use [Not Recovered/Not Resolved]
  - Hypoacusis [Not Recovered/Not Resolved]
  - Cough [Unknown]
  - Disability [Not Recovered/Not Resolved]
